FAERS Safety Report 14701217 (Version 3)
Quarter: 2018Q2

REPORT INFORMATION
  Report Type: Report from Study
  Country: US (occurrence: US)
  Receive Date: 20180330
  Receipt Date: 20180511
  Transmission Date: 20180711
  Serious: Yes (Hospitalization, Other)
  Sender: FDA-Public Use
  Company Number: US-SA-2018SA085383

PATIENT
  Age: 83 Year
  Sex: Female
  Weight: 67.13 kg

DRUGS (1)
  1. MULTAQ [Suspect]
     Active Substance: DRONEDARONE
     Indication: ARRHYTHMIA
     Route: 048
     Dates: start: 200808, end: 20170322

REACTIONS (7)
  - Meniere^s disease [Not Recovered/Not Resolved]
  - Arrhythmia [Recovered/Resolved]
  - Vertigo [Recovered/Resolved]
  - Thyroid function test abnormal [Recovered/Resolved]
  - Cataract [Recovered/Resolved]
  - Deafness [Not Recovered/Not Resolved]
  - Blindness [Not Recovered/Not Resolved]

NARRATIVE: CASE EVENT DATE: 201407
